FAERS Safety Report 4669074-7 (Version None)
Quarter: 2005Q2

REPORT INFORMATION
  Report Type: 
  Country: None (occurrence: None)
  Receive Date: 20050523
  Receipt Date: 20040212
  Transmission Date: 20051028
  Serious: Yes (Disabling)
  Sender: FDA-Public Use
  Company Number: PHRM2004FR00865

PATIENT
  Age: 50 Year
  Sex: Female
  Weight: 50 kg

DRUGS (6)
  1. ZOMETA [Suspect]
     Indication: METASTASES TO BONE
     Dosage: 4 MG, QMO
     Dates: start: 20030101, end: 20030901
  2. NAVELBINE [Concomitant]
     Indication: BREAST CANCER
     Dosage: 1 DF, QMO
     Dates: start: 20020906, end: 20030501
  3. FLUOROURACIL [Concomitant]
     Indication: BREAST CANCER
     Dosage: 1 DF, QMO
     Dates: start: 20020906, end: 20030501
  4. CORTICOSTEROID NOS [Concomitant]
     Indication: BREAST CANCER
  5. EPREX [Concomitant]
     Indication: ANAEMIA
  6. ARANESP [Concomitant]
     Indication: ANAEMIA

REACTIONS (3)
  - ANAEMIA OF MALIGNANT DISEASE [None]
  - GINGIVAL INJURY [None]
  - OSTEONECROSIS [None]
